FAERS Safety Report 17254816 (Version 2)
Quarter: 2020Q2

REPORT INFORMATION
  Report Type: Report from Study
  Country: US (occurrence: US)
  Receive Date: 20200109
  Receipt Date: 20200421
  Transmission Date: 20200713
  Serious: Yes (Hospitalization)
  Sender: FDA-Public Use
  Company Number: US-EXELIXIS-CABO-19023804

PATIENT
  Sex: Female

DRUGS (27)
  1. LANTUS XR [Concomitant]
     Active Substance: INSULIN GLARGINE
  2. NOVOLOG [Concomitant]
     Active Substance: INSULIN ASPART
  3. TUMS CHEWIES [Concomitant]
  4. CABOMETYX [Suspect]
     Active Substance: CABOZANTINIB S-MALATE
     Dosage: 40 MG, QOD (1 HOUR BEFOR OR 2 HOURS AFTER MEAL)
     Route: 048
  5. CALCIUM [Concomitant]
     Active Substance: CALCIUM
  6. CABOMETYX [Suspect]
     Active Substance: CABOZANTINIB S-MALATE
     Indication: RENAL DISORDER
     Dosage: 40 MG, QD (1 HOUR BEFORE OR 2 HOURS AFTER A MEAL)
     Route: 048
  7. CABOMETYX [Suspect]
     Active Substance: CABOZANTINIB S-MALATE
     Dosage: 40 MG, QD (1 HOUR BEFORE OR 2 HOURS AFTER A MEAL)
     Route: 048
  8. FLUOXETINE [Concomitant]
     Active Substance: FLUOXETINE HYDROCHLORIDE
  9. IRON [Concomitant]
     Active Substance: IRON
  10. VITAMIN C [Concomitant]
     Active Substance: ASCORBIC ACID
  11. CABOMETYX [Suspect]
     Active Substance: CABOZANTINIB S-MALATE
     Indication: RENAL CANCER
     Dosage: 60 MG, QD (1 HOUR BEFORE OR 2 HOURS AFTER A MEAL)
     Route: 048
     Dates: start: 20180330
  12. METFORMIN [Concomitant]
     Active Substance: METFORMIN HYDROCHLORIDE
  13. POTASSIUM [Concomitant]
     Active Substance: POTASSIUM
  14. QUETIAPINE. [Concomitant]
     Active Substance: QUETIAPINE
  15. ROLAIDS [Concomitant]
     Active Substance: CALCIUM CARBONATE\MAGNESIUM HYDROXIDE
  16. RAMIPRIL. [Concomitant]
     Active Substance: RAMIPRIL
  17. INVEGA [Concomitant]
     Active Substance: PALIPERIDONE
  18. PREDNISONE. [Concomitant]
     Active Substance: PREDNISONE
  19. VITAMIN D [Concomitant]
     Active Substance: VITAMIN D NOS
  20. CABOMETYX [Suspect]
     Active Substance: CABOZANTINIB S-MALATE
     Dosage: 40 MG, QOD (1 HOUR BEFOR OR 2 HOURS AFTER MEAL)
     Route: 048
  21. CABOMETYX [Suspect]
     Active Substance: CABOZANTINIB S-MALATE
     Dosage: 40 MG (1 TIME PER DAY FOR 2 DAYS ABD THEN 1 DAY OFF AND THEN REPEAT; 1 HOUR BEFOR OR 2 HOURS AFTER M
     Route: 048
  22. AMLODIPINE [Concomitant]
     Active Substance: AMLODIPINE BESYLATE
  23. PIOGLITAZONE HCL [Concomitant]
     Active Substance: PIOGLITAZONE
  24. SIMVASTATIN. [Concomitant]
     Active Substance: SIMVASTATIN
  25. FUROSEMIDE. [Concomitant]
     Active Substance: FUROSEMIDE
  26. MULTIVITAMINS [Concomitant]
     Active Substance: VITAMINS
  27. OMEPRAZOLE. [Concomitant]
     Active Substance: OMEPRAZOLE

REACTIONS (17)
  - Sleep disorder [Not Recovered/Not Resolved]
  - Oxygen saturation decreased [Not Recovered/Not Resolved]
  - Rectal haemorrhage [Not Recovered/Not Resolved]
  - Taste disorder [Not Recovered/Not Resolved]
  - Depression [Not Recovered/Not Resolved]
  - Confusional state [Not Recovered/Not Resolved]
  - Fatigue [Not Recovered/Not Resolved]
  - Arthralgia [Not Recovered/Not Resolved]
  - Weight decreased [Not Recovered/Not Resolved]
  - Inappropriate schedule of product administration [Unknown]
  - Diarrhoea [Not Recovered/Not Resolved]
  - Product dose omission [Unknown]
  - Oral pain [Not Recovered/Not Resolved]
  - Hallucination [Not Recovered/Not Resolved]
  - Anorectal infection bacterial [Not Recovered/Not Resolved]
  - Blood sodium decreased [Not Recovered/Not Resolved]
  - Dehydration [Not Recovered/Not Resolved]
